FAERS Safety Report 9553198 (Version 1)
Quarter: 2013Q3

REPORT INFORMATION
  Report Type: Spontaneous
  Country: US (occurrence: None)
  Receive Date: 20130724
  Receipt Date: 20130724
  Transmission Date: 20140515
  Serious: Yes (Other)
  Sender: FDA-Public Use
  Company Number: PHEH2013US008273

PATIENT
  Age: 64 Year
  Sex: Female

DRUGS (2)
  1. GLEEVEC (IMATINIB) [Suspect]
     Indication: GASTROINTESTINAL NEOPLASM
     Route: 048
  2. NORVASC (AMLODIPINE BESILATE) [Concomitant]

REACTIONS (7)
  - Weight decreased [None]
  - Decreased appetite [None]
  - Nausea [None]
  - Hypohidrosis [None]
  - Chills [None]
  - Constipation [None]
  - Vomiting [None]
